FAERS Safety Report 7660443-X (Version None)
Quarter: 2011Q3

REPORT INFORMATION
  Report Type: 
  Country: None (occurrence: None)
  Receive Date: 20110805
  Receipt Date: 20110802
  Transmission Date: 20111222
  Serious: Yes (Death, Hospitalization)
  Sender: FDA-Public Use
  Company Number: US-GILEAD-2011-0041397

PATIENT
  Sex: Male

DRUGS (19)
  1. VENTAVIS [Concomitant]
  2. PLAVIX [Concomitant]
  3. SIMVASTATIN [Concomitant]
  4. BENAZEPRIL HYDROCHLORIDE [Concomitant]
  5. METFORMIN HCL [Concomitant]
  6. NOVOLOG [Concomitant]
  7. MULTI-VITAMINS [Concomitant]
  8. ADVAIR DISKUS 100/50 [Concomitant]
  9. NORVASC [Concomitant]
  10. LOPRESSOR [Concomitant]
  11. SPIRIVA [Concomitant]
  12. ALBUTEROL SULFATE AUTOHALER [Concomitant]
  13. LOTREL [Concomitant]
  14. PROTONIX [Concomitant]
  15. LASIX [Concomitant]
  16. ZANTAC [Concomitant]
  17. FLUOXETINE [Concomitant]
  18. FIBER SUPPLEMENTS [Concomitant]
  19. LETAIRIS [Suspect]
     Indication: PULMONARY HYPERTENSION
     Route: 048
     Dates: start: 20100419

REACTIONS (1)
  - DEATH [None]
